FAERS Safety Report 5002840-7 (Version None)
Quarter: 2006Q2

REPORT INFORMATION
  Report Type: 
  Country: None (occurrence: None)
  Receive Date: 20060512
  Receipt Date: 20060501
  Transmission Date: 20061013
  Serious: Yes (Hospitalization)
  Sender: FDA-Public Use
  Company Number: 200611255BWH

PATIENT
  Age: 73 Year
  Sex: Female
  Weight: 55.3388 kg

DRUGS (13)
  1. NEXAVAR [Suspect]
     Indication: GLUCAGONOMA
     Dosage: SEE IMAGE, ORAL
     Route: 048
     Dates: start: 20060201, end: 20060302
  2. NEXAVAR [Suspect]
     Indication: METASTASES TO LYMPH NODES
     Dosage: SEE IMAGE, ORAL
     Route: 048
     Dates: start: 20060201, end: 20060302
  3. NEXAVAR [Suspect]
     Indication: GLUCAGONOMA
     Dosage: SEE IMAGE, ORAL
     Route: 048
     Dates: start: 20060328
  4. NEXAVAR [Suspect]
     Indication: METASTASES TO LYMPH NODES
     Dosage: SEE IMAGE, ORAL
     Route: 048
     Dates: start: 20060328
  5. NEXAVAR [Suspect]
     Indication: GLUCAGONOMA
     Dosage: SEE IMAGE, ORAL
     Route: 048
     Dates: start: 20060405
  6. NEXAVAR [Suspect]
     Indication: METASTASES TO LYMPH NODES
     Dosage: SEE IMAGE, ORAL
     Route: 048
     Dates: start: 20060405
  7. NEXAVAR [Suspect]
     Indication: GLUCAGONOMA
     Dosage: SEE IMAGE, ORAL
     Route: 048
     Dates: start: 20060406
  8. NEXAVAR [Suspect]
     Indication: METASTASES TO LYMPH NODES
     Dosage: SEE IMAGE, ORAL
     Route: 048
     Dates: start: 20060406
  9. SANDOSTATIN [Concomitant]
  10. ACTONEL [Concomitant]
  11. OSCAL [Concomitant]
  12. INSULIN [Concomitant]
  13. SOLU-MEDROL [Concomitant]

REACTIONS (7)
  - BLOOD GLUCOSE INCREASED [None]
  - BLOOD PRESSURE INCREASED [None]
  - DEHYDRATION [None]
  - DIARRHOEA [None]
  - EPISTAXIS [None]
  - STEVENS-JOHNSON SYNDROME [None]
  - WEIGHT DECREASED [None]
